FAERS Safety Report 9531474 (Version 1)
Quarter: 2013Q3

REPORT INFORMATION
  Report Type: Spontaneous
  Country: US (occurrence: None)
  Receive Date: 20130916
  Receipt Date: 20130916
  Transmission Date: 20140515
  Serious: No
  Sender: FDA-Public Use
  Company Number: None

PATIENT
  Age: 56 Year
  Sex: Female
  Weight: 62.14 kg

DRUGS (1)
  1. EVISTA [Suspect]
     Indication: MENOPAUSAL SYMPTOMS
     Dosage: 1 TABLET ONCE DAILY TAKEN BY MOUTH
     Dates: start: 20130520, end: 20130913

REACTIONS (1)
  - Hot flush [None]
